FAERS Safety Report 10258412 (Version 1)
Quarter: 2014Q2

REPORT INFORMATION
  Report Type: Report from Study
  Country: US (occurrence: US)
  Receive Date: 20140625
  Receipt Date: 20140625
  Transmission Date: 20141212
  Serious: Yes (Hospitalization, Other)
  Sender: FDA-Public Use
  Company Number: US-ASTRAZENECA-2013SE37023

PATIENT
  Age: 63 Year
  Sex: Female

DRUGS (2)
  1. VIMOVO [Suspect]
     Indication: ARTHRITIS
     Dosage: 500-20 MG DAILY
     Route: 048
  2. LEVOTHYROXINE [Concomitant]
     Indication: THYROID DISORDER

REACTIONS (1)
  - Hip arthroplasty [Unknown]
